FAERS Safety Report 3966653 (Version 1)
Quarter: 2020Q3

REPORT INFORMATION
  Report Type: Spontaneous
  Country: US (occurrence: None)
  Receive Date: 20030701
  Receipt Date: 20030701
  Transmission Date: 20201104
  Serious: Yes (Other)
  Sender: FDA-Public Use
  Company Number: None

PATIENT
  Age: 20 Year
  Sex: Female
  Weight: 52.21 kg

DRUGS (3)
  1. HYOSCYAMINE. [Suspect]
     Active Substance: HYOSCYAMINE
     Indication: GASTROOESOPHAGEAL REFLUX DISEASE
     Dosage: 0.125MG PO
     Route: 048
     Dates: start: 20030527, end: 20030529
  2. ZANTAC [Suspect]
     Active Substance: RANITIDINE HYDROCHLORIDE
     Indication: HIATUS HERNIA
     Dates: start: 20030527, end: 20030528
  3. DEPO SHOT [Concomitant]

REACTIONS (3)
  - Rash pruritic [None]
  - Urticaria [None]
  - Pain of skin [None]

NARRATIVE: CASE EVENT DATE: 20030529
